FAERS Safety Report 11652750 (Version 3)
Quarter: 2016Q1

REPORT INFORMATION
  Report Type: Spontaneous
  Country: JP (occurrence: JP)
  Receive Date: 20151022
  Receipt Date: 20160318
  Transmission Date: 20160525
  Serious: Yes (Disabling, Other)
  Sender: FDA-Public Use
  Company Number: JP-PFIZER INC-2015346813

PATIENT
  Sex: Male

DRUGS (4)
  1. JZOLOFT [Suspect]
     Active Substance: SERTRALINE HYDROCHLORIDE
     Indication: PANIC DISORDER
     Dosage: UP TO 100 MG, ONCE DAILY
     Route: 064
     Dates: start: 20100703
  2. MEILAX [Suspect]
     Active Substance: ETHYL LOFLAZEPATE
     Indication: PANIC DISORDER
     Dosage: 2 MG, 1X/DAY
     Route: 064
     Dates: start: 20100717
  3. SOLANAX [Suspect]
     Active Substance: ALPRAZOLAM
     Indication: PANIC DISORDER
     Dosage: 0.4 MG, AS NEEDED
     Route: 064
     Dates: start: 20100717
  4. LOXONIN [Suspect]
     Active Substance: LOXOPROFEN SODIUM
     Indication: MIGRAINE
     Dosage: 60 MG, AS NEEDED
     Route: 064
     Dates: start: 20100717

REACTIONS (3)
  - Maternal exposure during pregnancy [Unknown]
  - Developmental delay [Not Recovered/Not Resolved]
  - Febrile convulsion [Recovered/Resolved]

NARRATIVE: CASE EVENT DATE: 201212
